FAERS Safety Report 4468033-7 (Version None)
Quarter: 2004Q4

REPORT INFORMATION
  Report Type: 
  Country: None (occurrence: None)
  Receive Date: 20041004
  Receipt Date: 20041004
  Transmission Date: 20050328
  Serious: Yes (Other)
  Sender: FDA-Public Use
  Company Number: None

PATIENT
  Age: 74 Year
  Sex: Male
  Weight: 74.8 kg

DRUGS (9)
  1. SIMVASTATIN [Suspect]
  2. LISINOPRIL [Concomitant]
  3. PAROXETINE HCL [Concomitant]
  4. HALOPERIDOL [Concomitant]
  5. RISPERIDONE [Concomitant]
  6. RANITIDINE HCL [Concomitant]
  7. FLUNISOLIDE INH [Concomitant]
  8. GLYBURIDE [Concomitant]
  9. LORATADINE [Concomitant]

REACTIONS (1)
  - MYALGIA [None]
